FAERS Safety Report 7787371-3 (Version None)
Quarter: 2011Q3

REPORT INFORMATION
  Report Type: 
  Country: None (occurrence: None)
  Receive Date: 20110929
  Receipt Date: 20110916
  Transmission Date: 20111222
  Serious: Yes (Other)
  Sender: FDA-Public Use
  Company Number: PHHY2011BR83133

PATIENT
  Sex: Female

DRUGS (2)
  1. HYDRALAZINE HCL [Suspect]
  2. EXFORGE HCT [Suspect]
     Dosage: UNK UKN, UNK

REACTIONS (2)
  - HAEMORRHAGE [None]
  - BLOOD PRESSURE INADEQUATELY CONTROLLED [None]
